FAERS Safety Report 24969015 (Version 1)
Quarter: 2025Q1

REPORT INFORMATION
  Report Type: Spontaneous
  Country: CA (occurrence: CA)
  Receive Date: 20250214
  Receipt Date: 20250214
  Transmission Date: 20250408
  Serious: Yes (Death, Hospitalization, Other)
  Sender: CSL BEHRING
  Company Number: CA-BEH-2025195365

PATIENT
  Age: 63 Year
  Sex: Male

DRUGS (2)
  1. HIZENTRA [Suspect]
     Active Substance: HUMAN IMMUNOGLOBULIN G
     Indication: Secondary immunodeficiency
     Dosage: 12 G, QW(1 EVERY 1 WEEKS)
     Route: 058
  2. HIZENTRA [Suspect]
     Active Substance: HUMAN IMMUNOGLOBULIN G
     Dosage: 8 G, QW(1 EVERY 1 WEEKS)
     Route: 058

REACTIONS (6)
  - Death [Fatal]
  - Arthritis infective [Fatal]
  - General physical health deterioration [Fatal]
  - Osteomyelitis [Fatal]
  - Product dose omission issue [Fatal]
  - Sepsis [Fatal]
